FAERS Safety Report 9414452 (Version 1)
Quarter: 2013Q3

REPORT INFORMATION
  Report Type: Spontaneous
  Country: BR (occurrence: BR)
  Receive Date: 20130723
  Receipt Date: 20130723
  Transmission Date: 20140515
  Serious: Yes (Other)
  Sender: FDA-Public Use
  Company Number: BR-AMGEN-BRASP2013050695

PATIENT
  Age: 34 Year
  Sex: Female
  Weight: 63.5 kg

DRUGS (3)
  1. ENBREL [Suspect]
     Indication: PSORIATIC ARTHROPATHY
     Dosage: 25 MG, WEEKLY
     Route: 058
     Dates: start: 20130621
  2. METHOTREXATE [Concomitant]
     Dosage: STRENGTH 2.5 MG
  3. ISONIAZIDE [Concomitant]
     Dosage: STRENGTH 100 MG

REACTIONS (3)
  - Psoriatic arthropathy [Unknown]
  - Feeling hot [Unknown]
  - Peripheral coldness [Unknown]
